FAERS Safety Report 17219874 (Version 9)
Quarter: 2021Q4

REPORT INFORMATION
  Report Type: Spontaneous
  Country: US (occurrence: US)
  Receive Date: 20191231
  Receipt Date: 20211229
  Transmission Date: 20220303
  Serious: No
  Sender: FDA-Public Use
  Company Number: US-SA-2019SA357892

PATIENT
  Age: 60 Year
  Sex: Female

DRUGS (4)
  1. DUPIXENT [Suspect]
     Active Substance: DUPILUMAB
     Dosage: 600 MG, 1X
     Route: 058
     Dates: start: 2019, end: 2019
  2. DUPIXENT [Suspect]
     Active Substance: DUPILUMAB
     Dosage: 300 MG, QOW
     Route: 058
     Dates: start: 201911
  3. DUPIXENT [Suspect]
     Active Substance: DUPILUMAB
     Dosage: 1 DF; OTHER
     Route: 058
     Dates: start: 20200801, end: 20200814
  4. DUPIXENT [Suspect]
     Active Substance: DUPILUMAB
     Dosage: 300 UNK
     Route: 058
     Dates: start: 202105

REACTIONS (18)
  - Peripheral swelling [Unknown]
  - Erythema [Unknown]
  - Pruritus [Unknown]
  - Hypoaesthesia [Unknown]
  - Wrist fracture [Unknown]
  - Fall [Unknown]
  - Nodule [Unknown]
  - Feeling abnormal [Unknown]
  - Vision blurred [Unknown]
  - Eye irritation [Unknown]
  - Eye pruritus [Unknown]
  - Pruritus [Unknown]
  - Rash [Unknown]
  - Rash erythematous [Unknown]
  - Incorrect dose administered [Unknown]
  - Product dose omission issue [Unknown]
  - Inappropriate schedule of product administration [Unknown]
  - Product dose omission in error [Unknown]

NARRATIVE: CASE EVENT DATE: 20191201
